FAERS Safety Report 4813178-2 (Version None)
Quarter: 2005Q4

REPORT INFORMATION
  Report Type: 
  Country: None (occurrence: None)
  Receive Date: 20051028
  Receipt Date: 20050405
  Transmission Date: 20060501
  Serious: No
  Sender: FDA-Public Use
  Company Number: US-GLAXOSMITHKLINE-A0552820A

PATIENT
  Age: 64 Year
  Sex: Male

DRUGS (8)
  1. ADVAIR DISKUS 100/50 [Suspect]
     Indication: DRUG USE FOR UNKNOWN INDICATION
     Route: 055
     Dates: start: 20040505
  2. PREDNISONE [Concomitant]
  3. SINGULAIR [Concomitant]
  4. DUONEB [Concomitant]
  5. BROMFED PD [Concomitant]
  6. BACTRIM DS [Concomitant]
  7. FOSAMAX [Concomitant]
  8. MYCELEX [Concomitant]

REACTIONS (2)
  - DRUG INEFFECTIVE [None]
  - PHARMACEUTICAL PRODUCT COMPLAINT [None]
